FAERS Safety Report 16100956 (Version 1)
Quarter: 2019Q1

REPORT INFORMATION
  Report Type: Spontaneous
  Country: US (occurrence: US)
  Receive Date: 20190321
  Receipt Date: 20190321
  Transmission Date: 20190418
  Serious: Yes (Other)
  Sender: FDA-Public Use
  Company Number: US-SA-2019SA070858

PATIENT
  Age: 31 Year
  Sex: Male

DRUGS (1)
  1. AUBAGIO [Suspect]
     Active Substance: TERIFLUNOMIDE
     Indication: MULTIPLE SCLEROSIS
     Dosage: 40 MG, QD
     Route: 048
     Dates: start: 20181204

REACTIONS (9)
  - Headache [Unknown]
  - Drug ineffective [Unknown]
  - Insomnia [Unknown]
  - Alopecia [Unknown]
  - Multiple sclerosis [Unknown]
  - Product use issue [Unknown]
  - Photophobia [Unknown]
  - Back pain [Unknown]
  - Pain of skin [Unknown]
